FAERS Safety Report 10753791 (Version 2)
Quarter: 2015Q4

REPORT INFORMATION
  Report Type: Report from Study
  Country: BR (occurrence: BR)
  Receive Date: 20150201
  Receipt Date: 20151203
  Transmission Date: 20160304
  Serious: Yes (Hospitalization)
  Sender: FDA-Public Use
  Company Number: BR-ROCHE-1088056

PATIENT
  Age: 58 Year
  Sex: Female
  Weight: 90 kg

DRUGS (16)
  1. ENDOFOLIN [Concomitant]
     Active Substance: FOLIC ACID
     Route: 048
  2. AMARYL [Concomitant]
     Active Substance: GLIMEPIRIDE
  3. SYNTHROID [Concomitant]
     Active Substance: LEVOTHYROXINE SODIUM
     Dosage: ONE TABLET IN FASTING
     Route: 048
  4. GLIFAGE XR [Concomitant]
     Active Substance: METFORMIN HYDROCHLORIDE
     Route: 048
  5. ACTEMRA [Suspect]
     Active Substance: TOCILIZUMAB
     Indication: RHEUMATOID ARTHRITIS
     Route: 042
     Dates: start: 20120130, end: 201407
  6. SIMVASTATIN. [Concomitant]
     Active Substance: SIMVASTATIN
  7. DEPURA [Concomitant]
     Active Substance: CHOLECALCIFEROL
     Route: 065
  8. CELEBRA [Concomitant]
     Active Substance: CELECOXIB
     Indication: PAIN
     Route: 048
  9. METFORMIN [Concomitant]
     Active Substance: METFORMIN HYDROCHLORIDE
  10. MIRTAX [Concomitant]
     Route: 048
  11. GLIMEPIRIDE. [Concomitant]
     Active Substance: GLIMEPIRIDE
     Route: 048
  12. PURAN [Concomitant]
     Active Substance: LEVOTHYROXINE SODIUM
  13. MIRTAX [Concomitant]
  14. JANUVIA [Concomitant]
     Active Substance: SITAGLIPTIN PHOSPHATE
  15. METHOTREXATE [Concomitant]
     Active Substance: METHOTREXATE
     Route: 065
  16. TECNOMET [Concomitant]
     Active Substance: METHOTREXATE
     Route: 065

REACTIONS (9)
  - Cerebrovascular accident [Unknown]
  - Hunger [Unknown]
  - Urinary tract infection bacterial [Unknown]
  - Sluggishness [Recovered/Resolved]
  - Pruritus [Unknown]
  - Wound [Unknown]
  - Immunodeficiency [Unknown]
  - Weight increased [Unknown]
  - Weight decreased [Recovered/Resolved]

NARRATIVE: CASE EVENT DATE: 201508
